FAERS Safety Report 5039521-X (Version None)
Quarter: 2006Q2

REPORT INFORMATION
  Report Type: 
  Country: None (occurrence: None)
  Receive Date: 20060629
  Receipt Date: 20060529
  Transmission Date: 20061013
  Serious: Yes (Death, Hospitalization, Other)
  Sender: FDA-Public Use
  Company Number: PHBS2006IT07878

PATIENT
  Age: 66 Year

DRUGS (7)
  1. INTERFERON ALFA [Concomitant]
     Dosage: UNK, UNK
     Route: 065
     Dates: start: 20000401
  2. DEXAMETHASONE TAB [Concomitant]
     Dosage: 40 MG, X 4 DAYS/MONTH
     Route: 065
     Dates: start: 20000401
  3. THALIDOMIDE [Concomitant]
     Dosage: 300 MG/D
     Route: 065
     Dates: start: 20020101, end: 20030101
  4. NADROPARIN [Concomitant]
     Route: 065
     Dates: start: 20020101
  5. DICUMAROL [Concomitant]
     Route: 065
  6. ZOLEDRONATE [Suspect]
     Indication: MULTIPLE MYELOMA
     Dosage: 4 MG, UNK
     Route: 065
     Dates: start: 20020101, end: 20040201
  7. PAMIDRONATE DISODIUM [Suspect]
     Indication: MULTIPLE MYELOMA
     Dosage: 90 MG, QMO
     Route: 065
     Dates: start: 20000401, end: 20020101

REACTIONS (36)
  - ABSCESS [None]
  - BONE DEBRIDEMENT [None]
  - BONE DISORDER [None]
  - BONE LESION [None]
  - BRONCHOPNEUMONIA [None]
  - CARDIAC FAILURE [None]
  - CONSTIPATION [None]
  - DENTAL CARIES [None]
  - DENTAL PLAQUE [None]
  - DIZZINESS [None]
  - FISTULA [None]
  - GINGIVAL RECESSION [None]
  - HYPERBARIC OXYGEN THERAPY [None]
  - LIMB CRUSHING INJURY [None]
  - LOCALISED INFECTION [None]
  - MALAISE [None]
  - MALIGNANT NEOPLASM PROGRESSION [None]
  - MYELOMA RECURRENCE [None]
  - OEDEMA [None]
  - ORAL DISCOMFORT [None]
  - ORAL PAIN [None]
  - ORAL SOFT TISSUE DISORDER [None]
  - OSTEOMYELITIS [None]
  - OSTEONECROSIS [None]
  - PAIN IN JAW [None]
  - PERIODONTITIS [None]
  - PLASMACYTOSIS [None]
  - PLASTIC SURGERY [None]
  - PRIMARY SEQUESTRUM [None]
  - PYREXIA [None]
  - SEQUESTRECTOMY [None]
  - SHOCK [None]
  - SOMNOLENCE [None]
  - TOOTH DISORDER [None]
  - TOOTH EXTRACTION [None]
  - WOUND DEHISCENCE [None]
